FAERS Safety Report 10189424 (Version 5)
Quarter: 2014Q3

REPORT INFORMATION
  Report Type: Report from Study
  Country: BE (occurrence: BE)
  Receive Date: 20140522
  Receipt Date: 20140728
  Transmission Date: 20150326
  Serious: Yes (Other)
  Sender: FDA-Public Use
  Company Number: BE-BAYER-2014-051942

PATIENT
  Age: 84 Year
  Sex: Male

DRUGS (7)
  1. MOVICOL [Concomitant]
     Active Substance: POLYETHYLENE GLYCOL 3350\POTASSIUM CHLORIDE\SODIUM BICARBONATE\SODIUM CHLORIDE
  2. BUSCOPAN [Concomitant]
     Active Substance: BUTYLSCOPOLAMINE BROMIDE
  3. TRITACE [Concomitant]
     Active Substance: RAMIPRIL
     Dosage: 5 MG, UNK
  4. PARACETAMOL [Concomitant]
     Active Substance: ACETAMINOPHEN
  5. NEXAVAR [Suspect]
     Active Substance: SORAFENIB
     Indication: THYROID CANCER
     Dosage: 800 MG DAILY
  6. PREVALON [Concomitant]
  7. NEXAVAR [Suspect]
     Active Substance: SORAFENIB
     Indication: THYROID CANCER
     Dosage: DAILY DOSE 600 MG
     Dates: start: 20140329

REACTIONS (11)
  - Weight decreased [None]
  - Decreased appetite [None]
  - Constipation [None]
  - Diarrhoea [Recovered/Resolved]
  - Hypoacusis [Recovered/Resolved]
  - Dysphonia [None]
  - Hypertension [None]
  - Haematochezia [Recovered/Resolved]
  - Palmar-plantar erythrodysaesthesia syndrome [None]
  - Pyrexia [Recovered/Resolved]
  - Off label use [None]

NARRATIVE: CASE EVENT DATE: 20140402
